FAERS Safety Report 25255533 (Version 1)
Quarter: 2025Q2

REPORT INFORMATION
  Report Type: Spontaneous
  Country: US (occurrence: None)
  Receive Date: 20250429
  Receipt Date: 20250429
  Transmission Date: 20250716
  Serious: Yes (Life-Threatening, Hospitalization)
  Sender: FDA-CTU
  Company Number: None

PATIENT
  Age: 78 Year
  Sex: Female

DRUGS (4)
  1. ELIQUIS [Suspect]
     Active Substance: APIXABAN
     Dosage: FREQUENCY : TWICE A DAY;?
     Route: 048
     Dates: start: 20230508
  2. PRIMIDONE [Suspect]
     Active Substance: PRIMIDONE
     Dosage: FREQUENCY : TWICE A DAY;?
     Route: 048
     Dates: start: 20221118, end: 20250127
  3. PRIMIDONE [Concomitant]
     Active Substance: PRIMIDONE
     Dates: start: 20221118
  4. ELIQUIS [Concomitant]
     Active Substance: APIXABAN
     Dates: start: 20230508

REACTIONS (3)
  - Drug interaction [None]
  - Coagulation time shortened [None]
  - Cerebrovascular accident [None]

NARRATIVE: CASE EVENT DATE: 20250127
